FAERS Safety Report 21076162 (Version 1)
Quarter: 2022Q3

REPORT INFORMATION
  Report Type: Spontaneous
  Country: CN (occurrence: CN)
  Receive Date: 20220713
  Receipt Date: 20220713
  Transmission Date: 20221026
  Serious: Yes (Hospitalization)
  Sender: FDA-Public Use
  Company Number: CN-PFIZER INC-PV202200019287

PATIENT
  Age: 70 Year
  Sex: Male

DRUGS (2)
  1. ZYVOX [Suspect]
     Active Substance: LINEZOLID
     Indication: Anti-infective therapy
     Dosage: 0.600 G, 2X/DAY
     Route: 048
     Dates: start: 20220605, end: 20220623
  2. MOXIFLOXACIN [Concomitant]
     Active Substance: MOXIFLOXACIN
     Dosage: UNK

REACTIONS (2)
  - Platelet count decreased [Recovering/Resolving]
  - Haemoptysis [Unknown]

NARRATIVE: CASE EVENT DATE: 20220601
